FAERS Safety Report 10028119 (Version 1)
Quarter: 2014Q1

REPORT INFORMATION
  Report Type: Spontaneous
  Country: AT (occurrence: None)
  Receive Date: 20140306
  Receipt Date: 20140306
  Transmission Date: 20141002
  Serious: Yes (Death, Hospitalization, Disabling)
  Sender: FDA-Public Use
  Company Number: AT-013571

PATIENT
  Age: 26 Year
  Sex: Female
  Weight: 55 kg

DRUGS (1)
  1. PICOPREP (PICOPREP) 2 DF (NOT SPECIFIED) [Suspect]
     Indication: COLONOSCOPY
     Dates: start: 20130423, end: 20130423

REACTIONS (12)
  - Brain death [None]
  - Hyponatraemia [None]
  - Brain oedema [None]
  - Headache [None]
  - Blood pressure increased [None]
  - Intracranial pressure increased [None]
  - Brain herniation [None]
  - Hypoxia [None]
  - Brain injury [None]
  - Bronchopneumonia [None]
  - Bronchitis bacterial [None]
  - Pituitary tumour [None]
